FAERS Safety Report 5961813-8 (Version None)
Quarter: 2008Q4

REPORT INFORMATION
  Report Type: 
  Country: None (occurrence: None)
  Receive Date: 20081121
  Receipt Date: 20071012
  Transmission Date: 20090506
  Serious: No
  Sender: FDA-Public Use
  Company Number: US-BRISTOL-MYERS SQUIBB COMPANY-13939772

PATIENT
  Age: 76 Year
  Sex: Female
  Weight: 54 kg

DRUGS (1)
  1. AVALIDE [Suspect]
     Indication: HYPERTENSION
     Dosage: (1 AND 1/2 TABLETS )DAILY
     Route: 048

REACTIONS (1)
  - POLLAKIURIA [None]
